FAERS Safety Report 6282439-5 (Version None)
Quarter: 2009Q3

REPORT INFORMATION
  Report Type: 
  Country: None (occurrence: None)
  Receive Date: 20090724
  Receipt Date: 20090715
  Transmission Date: 20100115
  Serious: Yes (Other)
  Sender: FDA-Public Use
  Company Number: US-ROCHE-636542

PATIENT
  Age: 82 Year
  Sex: Female

DRUGS (4)
  1. BONIVA [Suspect]
     Indication: OSTEOPOROSIS
     Route: 065
     Dates: start: 20060101
  2. BONIVA [Suspect]
     Route: 042
     Dates: end: 20070101
  3. CALCIUM [Concomitant]
     Dosage: DRUG REPORTED AS : CHEWABLE CALCIUM
  4. VITAMIN [Concomitant]

REACTIONS (4)
  - CONSTIPATION [None]
  - DYSPHAGIA [None]
  - DYSPHONIA [None]
  - FRACTURE DELAYED UNION [None]
